FAERS Safety Report 25249283 (Version 1)
Quarter: 2025Q2

REPORT INFORMATION
  Report Type: Report from Study
  Country: US (occurrence: US)
  Receive Date: 20250429
  Receipt Date: 20250429
  Transmission Date: 20250717
  Serious: No
  Sender: SANDOZ
  Company Number: US-SANDOZ-SDZ2025US017941

PATIENT
  Age: 6 Year
  Sex: Female

DRUGS (6)
  1. OMNITROPE [Suspect]
     Active Substance: SOMATROPIN
     Indication: Turner^s syndrome
     Route: 058
     Dates: start: 20250320, end: 20250321
  2. OMNITROPE [Suspect]
     Active Substance: SOMATROPIN
     Indication: Turner^s syndrome
     Route: 058
     Dates: start: 20250320, end: 20250321
  3. OMNITROPE [Suspect]
     Active Substance: SOMATROPIN
     Dosage: 0.8 MG, QD
     Route: 058
     Dates: start: 202503
  4. OMNITROPE [Suspect]
     Active Substance: SOMATROPIN
     Dosage: 0.8 MG, QD
     Route: 058
     Dates: start: 202503
  5. OMNITROPE [Suspect]
     Active Substance: SOMATROPIN
     Route: 058
     Dates: start: 20250320
  6. OMNITROPE [Suspect]
     Active Substance: SOMATROPIN
     Route: 058
     Dates: start: 20250320

REACTIONS (5)
  - Rash [Unknown]
  - Injection site bruising [Unknown]
  - Injection site pain [Unknown]
  - Drug ineffective [Unknown]
  - Product administered at inappropriate site [Unknown]

NARRATIVE: CASE EVENT DATE: 20250320
